FAERS Safety Report 7675580-3 (Version None)
Quarter: 2011Q3

REPORT INFORMATION
  Report Type: 
  Country: None (occurrence: None)
  Receive Date: 20110810
  Receipt Date: 20110804
  Transmission Date: 20111222
  Serious: Yes (Hospitalization, Other)
  Sender: FDA-Public Use
  Company Number: US-ABBOTT-11P-163-0844355-00

PATIENT
  Sex: Male
  Weight: 65.83 kg

DRUGS (5)
  1. TINCTURE OF OPIUM [Concomitant]
     Indication: PRODUCT USED FOR UNKNOWN INDICATION
  2. UNNAMED BLOOD PRESSURE MEDICATION [Concomitant]
     Indication: HYPERTENSION
  3. HUMIRA [Suspect]
     Dates: start: 20110201, end: 20110301
  4. HUMIRA [Suspect]
     Indication: CROHN'S DISEASE
     Dates: start: 20090101, end: 20100601
  5. TPN [Suspect]
     Indication: PRODUCT USED FOR UNKNOWN INDICATION

REACTIONS (8)
  - GALLBLADDER DISORDER [None]
  - DEHYDRATION [None]
  - DEVICE RELATED INFECTION [None]
  - MALNUTRITION [None]
  - ILEOSTOMY CLOSURE [None]
  - CROHN'S DISEASE [None]
  - ABDOMINAL PAIN [None]
  - HYPERTENSION [None]
